FAERS Safety Report 17791698 (Version 1)
Quarter: 2020Q2

REPORT INFORMATION
  Report Type: Spontaneous
  Country: CA (occurrence: CA)
  Receive Date: 20200515
  Receipt Date: 20200515
  Transmission Date: 20200714
  Serious: Yes (Hospitalization, Other)
  Sender: FDA-Public Use
  Company Number: CA-TEVA-2020-CA-1234911

PATIENT
  Age: 55 Year
  Sex: Female

DRUGS (12)
  1. ARAVA [Suspect]
     Active Substance: LEFLUNOMIDE
     Indication: RHEUMATOID ARTHRITIS
     Route: 065
  2. ENBREL [Suspect]
     Active Substance: ETANERCEPT
     Indication: RHEUMATOID ARTHRITIS
     Route: 058
  3. LYRICA [Concomitant]
     Active Substance: PREGABALIN
     Indication: FIBROMYALGIA
     Route: 048
  4. METHOTREXATE. [Suspect]
     Active Substance: METHOTREXATE
     Indication: RHEUMATOID ARTHRITIS
     Route: 065
  5. ACTEMRA [Suspect]
     Active Substance: TOCILIZUMAB
     Indication: ARTHRALGIA
     Route: 042
  6. DILAUDID [Concomitant]
     Active Substance: HYDROMORPHONE HYDROCHLORIDE
     Indication: ARTHRALGIA
     Dosage: 12 MILLIGRAM DAILY;
     Route: 065
  7. FUROSEMIDE. [Concomitant]
     Active Substance: FUROSEMIDE
     Route: 065
  8. PREDNISONE. [Concomitant]
     Active Substance: PREDNISONE
     Indication: ARTHRALGIA
     Dosage: 14 MILLIGRAM DAILY;
     Route: 065
  9. CELEBREX [Suspect]
     Active Substance: CELECOXIB
     Indication: ARTHRALGIA
     Route: 065
  10. HYDROXYCHLOROQUINE [Suspect]
     Active Substance: HYDROXYCHLOROQUINE
     Indication: ARTHRALGIA
     Route: 065
  11. HYDROXYCHLOROQUINE [Suspect]
     Active Substance: HYDROXYCHLOROQUINE
     Indication: PAIN
     Route: 065
  12. HYDROMORPH CONTIN [Concomitant]
     Active Substance: HYDROMORPHONE
     Indication: ARTHRALGIA
     Dosage: 54 MILLIGRAM DAILY;
     Route: 065

REACTIONS (28)
  - Cystitis [Recovered/Resolved]
  - Deformity [Recovered/Resolved]
  - Drug ineffective [Recovered/Resolved]
  - Immobile [Recovered/Resolved]
  - Memory impairment [Recovered/Resolved]
  - Peripheral swelling [Recovered/Resolved]
  - Scar [Recovered/Resolved]
  - Spinal deformity [Recovered/Resolved]
  - Encephalitis brain stem [Recovered/Resolved]
  - Joint destruction [Recovered/Resolved]
  - Psychiatric symptom [Recovered/Resolved]
  - Sepsis [Recovered/Resolved]
  - Fall [Recovered/Resolved]
  - Pain [Recovered/Resolved]
  - Seizure [Recovered/Resolved]
  - Fibromyalgia [Recovered/Resolved]
  - Dermatitis [Recovered/Resolved]
  - Immunodeficiency [Recovered/Resolved]
  - Vomiting [Recovered/Resolved]
  - Immune system disorder [Recovered/Resolved]
  - Loss of personal independence in daily activities [Recovered/Resolved]
  - Amnesia [Recovered/Resolved]
  - Condition aggravated [Recovered/Resolved]
  - Depressed mood [Recovered/Resolved]
  - Cardiovascular disorder [Recovered/Resolved]
  - Encephalitis [Recovered/Resolved]
  - Rheumatoid arthritis [Recovered/Resolved]
  - Rib fracture [Recovered/Resolved]
